FAERS Safety Report 24201978 (Version 2)
Quarter: 2025Q1

REPORT INFORMATION
  Report Type: Spontaneous
  Country: US (occurrence: US)
  Receive Date: 20240812
  Receipt Date: 20250211
  Transmission Date: 20250408
  Serious: No
  Sender: INCYTE
  Company Number: US-INCYTE CORPORATION-2024IN007662

PATIENT

DRUGS (1)
  1. OPZELURA [Suspect]
     Active Substance: RUXOLITINIB PHOSPHATE
     Indication: Vitiligo
     Dosage: 60 GRAM (1.5 %), BID
     Route: 061
     Dates: start: 202209

REACTIONS (2)
  - Product physical issue [Unknown]
  - Rash [Unknown]

NARRATIVE: CASE EVENT DATE: 20240714
